FAERS Safety Report 17052735 (Version 1)
Quarter: 2019Q4

REPORT INFORMATION
  Report Type: Spontaneous
  Country: HU (occurrence: HU)
  Receive Date: 20191120
  Receipt Date: 20191120
  Transmission Date: 20200122
  Serious: Yes (Hospitalization, Congenital Anomaly)
  Sender: FDA-Public Use
  Company Number: HU-MYLANLABS-2019M1110279

PATIENT
  Age: 3 Day
  Sex: Male
  Weight: .79 kg

DRUGS (1)
  1. SILDENAFIL. [Suspect]
     Active Substance: SILDENAFIL
     Indication: PRODUCT USED FOR UNKNOWN INDICATION
     Dosage: UNK
     Route: 065

REACTIONS (9)
  - Congenital pulmonary artery anomaly [Unknown]
  - Cardiomegaly [Recovered/Resolved]
  - Skin discolouration [Unknown]
  - Interruption of aortic arch [Unknown]
  - Myotonic dystrophy [Recovered/Resolved]
  - Poor feeding infant [Recovered/Resolved]
  - Cardiac murmur [Unknown]
  - Developmental delay [Recovered/Resolved]
  - Infantile vomiting [Recovered/Resolved]
